FAERS Safety Report 20265799 (Version 2)
Quarter: 2022Q1

REPORT INFORMATION
  Report Type: Spontaneous
  Country: UZ (occurrence: UZ)
  Receive Date: 20211231
  Receipt Date: 20220212
  Transmission Date: 20220423
  Serious: Yes (Death, Other)
  Sender: FDA-Public Use
  Company Number: UZ-JNJFOC-20211243523

PATIENT
  Age: 47 Year
  Sex: Male
  Weight: 62 kg

DRUGS (8)
  1. BEDAQUILINE [Suspect]
     Active Substance: BEDAQUILINE
     Indication: Tuberculosis
     Route: 048
     Dates: start: 20210504, end: 20211105
  2. BEDAQUILINE [Suspect]
     Active Substance: BEDAQUILINE
     Route: 048
     Dates: start: 20220107
  3. LINEZOLID [Suspect]
     Active Substance: LINEZOLID
     Indication: Tuberculosis
     Route: 048
     Dates: start: 20210504, end: 20211105
  4. LINEZOLID [Suspect]
     Active Substance: LINEZOLID
     Route: 048
     Dates: start: 20220103
  5. CLOFAZIMINE [Suspect]
     Active Substance: CLOFAZIMINE
     Indication: Tuberculosis
     Route: 048
     Dates: start: 20210504, end: 20211105
  6. CLOFAZIMINE [Suspect]
     Active Substance: CLOFAZIMINE
     Route: 048
     Dates: start: 20211231
  7. MOXIFLOXACIN [Suspect]
     Active Substance: MOXIFLOXACIN
     Indication: Tuberculosis
     Route: 048
     Dates: start: 20210504, end: 20211105
  8. MOXIFLOXACIN [Suspect]
     Active Substance: MOXIFLOXACIN
     Route: 048
     Dates: start: 20211228

REACTIONS (7)
  - Cardiovascular insufficiency [Fatal]
  - Acute respiratory failure [Fatal]
  - Hepatitis [Recovering/Resolving]
  - Cholecystitis chronic [Recovering/Resolving]
  - Pneumatosis intestinalis [Recovering/Resolving]
  - Hepatitis C virus test positive [Not Recovered/Not Resolved]
  - Hepatitis B virus test positive [Recovering/Resolving]

NARRATIVE: CASE EVENT DATE: 20210504
